FAERS Safety Report 4970367-4 (Version None)
Quarter: 2006Q2

REPORT INFORMATION
  Report Type: 
  Country: None (occurrence: None)
  Receive Date: 20060412
  Receipt Date: 20060303
  Transmission Date: 20061013
  Serious: Yes (Hospitalization)
  Sender: FDA-Public Use
  Company Number: PHBS2006JP03607

PATIENT
  Sex: Female

DRUGS (3)
  1. PREDONINE [Suspect]
     Indication: JUVENILE ARTHRITIS
     Dosage: 40 MG/D
     Route: 048
  2. PREDONINE [Suspect]
     Dosage: 15 MG/D
     Route: 048
     Dates: end: 20060228
  3. NEORAL [Suspect]
     Indication: JUVENILE ARTHRITIS
     Dosage: 150 MG/D
     Route: 048
     Dates: start: 20040627, end: 20060228

REACTIONS (4)
  - DISEASE PROGRESSION [None]
  - GENITAL HAEMORRHAGE [None]
  - IDIOPATHIC THROMBOCYTOPENIC PURPURA [None]
  - JUVENILE ARTHRITIS [None]
